FAERS Safety Report 6277679-5 (Version None)
Quarter: 2009Q3

REPORT INFORMATION
  Report Type: 
  Country: None (occurrence: None)
  Receive Date: 20090722
  Receipt Date: 20090716
  Transmission Date: 20100115
  Serious: Yes (Hospitalization)
  Sender: FDA-Public Use
  Company Number: A0098362A

PATIENT
  Age: 29 Year
  Sex: Female

DRUGS (13)
  1. IMITREX [Suspect]
     Indication: MIGRAINE
     Route: 045
  2. IBUPROFEN [Suspect]
     Indication: BACK PAIN
     Dosage: 800MG THREE TIMES PER DAY
     Route: 048
  3. IMITREX [Suspect]
  4. IMITREX [Suspect]
  5. DOXEPIN HCL [Concomitant]
  6. PHENERGAN [Concomitant]
  7. TYLENOL W/ CODEINE NO. 4 [Concomitant]
  8. REGLAN [Concomitant]
  9. ZANTAC [Concomitant]
  10. ULTRAM [Concomitant]
     Dates: start: 19990101
  11. NUBAIN [Concomitant]
  12. DEMEROL [Concomitant]
  13. ANTIDEPRESSANTS [Concomitant]

REACTIONS (13)
  - BACK PAIN [None]
  - CARDIAC FAILURE [None]
  - CHEST PAIN [None]
  - DRUG INEFFECTIVE [None]
  - DYSURIA [None]
  - FEELING ABNORMAL [None]
  - HOMICIDAL IDEATION [None]
  - HYPERTENSION [None]
  - RENAL FAILURE [None]
  - SENSORY DISTURBANCE [None]
  - SEROTONIN SYNDROME [None]
  - SUICIDAL IDEATION [None]
  - VOMITING [None]
